FAERS Safety Report 9177442 (Version 2)
Quarter: 2013Q2

REPORT INFORMATION
  Report Type: Spontaneous
  Country: US (occurrence: US)
  Receive Date: 20130321
  Receipt Date: 20130409
  Transmission Date: 20140414
  Serious: Yes (Hospitalization)
  Sender: FDA-Public Use
  Company Number: US-FOUGERA-2013FO000069

PATIENT
  Age: 39 Year
  Sex: Male
  Weight: 88.45 kg

DRUGS (4)
  1. NITRO-BID [Suspect]
     Indication: ANAL FISSURE
     Route: 061
     Dates: start: 201302, end: 20130307
  2. PREDNISONE [Concomitant]
     Indication: CROHN^S DISEASE
     Route: 048
  3. HUMIRA [Concomitant]
     Indication: CROHN^S DISEASE
  4. PERCOCET /00446701/ [Concomitant]
     Indication: PAIN
     Route: 048

REACTIONS (2)
  - Anal abscess [Not Recovered/Not Resolved]
  - Off label use [Recovered/Resolved]
